FAERS Safety Report 19372909 (Version 1)
Quarter: 2021Q2

REPORT INFORMATION
  Report Type: Spontaneous
  Country: CA (occurrence: CA)
  Receive Date: 20210604
  Receipt Date: 20210604
  Transmission Date: 20210717
  Serious: Yes (Life-Threatening)
  Sender: FDA-Public Use
  Company Number: CA-TEVA-2021-CA-1917233

PATIENT
  Age: 77 Year
  Sex: Female

DRUGS (3)
  1. AMIODARONE [Suspect]
     Active Substance: AMIODARONE
     Dosage: 1200 MILLIGRAM DAILY;
     Route: 048
  2. AMIODARONE [Suspect]
     Active Substance: AMIODARONE
     Route: 042
  3. METOPROLOL. [Concomitant]
     Active Substance: METOPROLOL
     Route: 065

REACTIONS (2)
  - Bradycardia [Unknown]
  - Torsade de pointes [Unknown]
